FAERS Safety Report 17967906 (Version 2)
Quarter: 2020Q3

REPORT INFORMATION
  Report Type: Report from Study
  Country: AU (occurrence: AU)
  Receive Date: 20200701
  Receipt Date: 20200724
  Transmission Date: 20201103
  Serious: Yes (Hospitalization, Other)
  Sender: FDA-Public Use
  Company Number: AU-EMD SERONO-9170462

PATIENT
  Sex: Female

DRUGS (2)
  1. MAVENCLAD [Suspect]
     Active Substance: CLADRIBINE
     Indication: MULTIPLE SCLEROSIS
     Dosage: YEAR ONE WEEK ONE THERAPY
     Dates: start: 20200302
  2. MAVENCLAD [Suspect]
     Active Substance: CLADRIBINE
     Dosage: YEAR ONE WEEK TWO THERAPY: STARTED ON 16 JUL 2020

REACTIONS (4)
  - Depression [Recovering/Resolving]
  - Intentional overdose [Unknown]
  - Lymphopenia [Unknown]
  - Mental disorder [Recovering/Resolving]
